FAERS Safety Report 6449703-8 (Version None)
Quarter: 2009Q4

REPORT INFORMATION
  Report Type: 
  Country: None (occurrence: None)
  Receive Date: 20091120
  Receipt Date: 20091109
  Transmission Date: 20100525
  Serious: Yes (Hospitalization)
  Sender: FDA-Public Use
  Company Number: BE-AMGEN-US374031

PATIENT
  Age: 62 Year
  Sex: Female
  Weight: 64 kg

DRUGS (4)
  1. ENBREL [Suspect]
     Indication: RHEUMATOID ARTHRITIS
     Route: 058
     Dates: start: 20070701
  2. MOTENS [Concomitant]
     Route: 048
     Dates: start: 19990101
  3. CLOZAN [Concomitant]
     Route: 048
     Dates: start: 20000101
  4. METHOTREXATE [Concomitant]
     Route: 048
     Dates: start: 19970701

REACTIONS (2)
  - CONDITION AGGRAVATED [None]
  - PELVI-URETERIC OBSTRUCTION [None]
